FAERS Safety Report 7879236-3 (Version None)
Quarter: 2011Q4

REPORT INFORMATION
  Report Type: 
  Country: None (occurrence: None)
  Receive Date: 20111101
  Receipt Date: 20111019
  Transmission Date: 20120403
  Serious: Yes (Hospitalization)
  Sender: FDA-Public Use
  Company Number: FR-CELGENEUS-056-50794-11102302

PATIENT
  Sex: Female

DRUGS (5)
  1. ZOFRAN [Suspect]
     Indication: PROPHYLAXIS OF NAUSEA AND VOMITING
     Dosage: 16 MILLIGRAM
     Route: 048
     Dates: start: 20091102
  2. PROZAC [Suspect]
     Indication: DEPRESSION
     Dosage: 20 MILLIGRAM
     Route: 048
     Dates: start: 20091228
  3. BROMAZEPAM [Suspect]
     Route: 048
  4. DUPHALAC [Suspect]
     Indication: CONSTIPATION
     Route: 048
     Dates: start: 20100106
  5. VIDAZA [Suspect]
     Dosage: 16.4286 MILLIGRAM
     Route: 058
     Dates: start: 20091102

REACTIONS (1)
  - ATRIAL FLUTTER [None]
